FAERS Safety Report 6383095-8 (Version None)
Quarter: 2009Q3

REPORT INFORMATION
  Report Type: 
  Country: None (occurrence: None)
  Receive Date: 20090928
  Receipt Date: 20090914
  Transmission Date: 20100115
  Serious: Yes (Death)
  Sender: FDA-Public Use
  Company Number: OPER20090166

PATIENT
  Age: 29 Year
  Sex: Male

DRUGS (2)
  1. OPANA ER [Suspect]
     Indication: DRUG USE FOR UNKNOWN INDICATION
  2. CITALOPRAM HYDROBROMIDE [Concomitant]

REACTIONS (4)
  - ACCIDENTAL DEATH [None]
  - DRUG TOXICITY [None]
  - HYPERHIDROSIS [None]
  - THIRST [None]
